FAERS Safety Report 23565286 (Version 1)
Quarter: 2024Q1

REPORT INFORMATION
  Report Type: Spontaneous
  Country: US (occurrence: None)
  Receive Date: 20240223
  Receipt Date: 20240223
  Transmission Date: 20240409
  Serious: No
  Sender: FDA-Public Use
  Company Number: None

PATIENT
  Age: 43 Year
  Sex: Female
  Weight: 111.15 kg

DRUGS (3)
  1. MOUNJARO [Suspect]
     Active Substance: TIRZEPATIDE
     Indication: Type 2 diabetes mellitus
     Dates: start: 20240222
  2. URSO [Concomitant]
     Active Substance: URSODIOL
  3. VYZULTA [Concomitant]
     Active Substance: LATANOPROSTENE BUNOD

REACTIONS (7)
  - Nausea [None]
  - Abdominal pain [None]
  - Headache [None]
  - Restlessness [None]
  - Myalgia [None]
  - Lymphadenopathy [None]
  - Pain of skin [None]

NARRATIVE: CASE EVENT DATE: 20240222
